FAERS Safety Report 12435818 (Version 3)
Quarter: 2016Q3

REPORT INFORMATION
  Report Type: Report from Study
  Country: JP (occurrence: JP)
  Receive Date: 20160603
  Receipt Date: 20160801
  Transmission Date: 20161109
  Serious: Yes (Hospitalization, Other)
  Sender: FDA-Public Use
  Company Number: PHHY2014JP174008

PATIENT
  Age: 53 Year
  Sex: Female
  Weight: 51 kg

DRUGS (23)
  1. GILENYA [Suspect]
     Active Substance: FINGOLIMOD HYDROCHLORIDE
     Indication: MULTIPLE SCLEROSIS
     Dosage: 0.5 MG, QD
     Route: 048
     Dates: start: 20120419, end: 20160518
  2. TEGRETOL [Concomitant]
     Active Substance: CARBAMAZEPINE
     Indication: MULTIPLE SCLEROSIS
     Dosage: 100 MG, QD
     Route: 048
     Dates: start: 20040119
  3. DEPAKENE [Concomitant]
     Active Substance: VALPROIC ACID
     Indication: MIGRAINE
     Dosage: 600 MG, QD
     Route: 048
     Dates: start: 20120514
  4. KETOPROFEN. [Concomitant]
     Active Substance: KETOPROFEN
     Indication: INTERVERTEBRAL DISC PROTRUSION
     Dosage: UNK
     Route: 061
     Dates: start: 20160204
  5. SELBEX [Concomitant]
     Active Substance: TEPRENONE
     Dosage: 150 MG, TID
     Route: 048
     Dates: start: 20140807
  6. LOXONIN [Concomitant]
     Active Substance: LOXOPROFEN SODIUM
     Dosage: UNK
     Route: 048
     Dates: start: 20140806
  7. IMIGRAN//SUMATRIPTAN SUCCINATE [Concomitant]
     Active Substance: SUMATRIPTAN SUCCINATE
     Indication: MIGRAINE
     Dosage: 50 MG, PRN
     Route: 048
     Dates: start: 20091026
  8. GABAPEN [Concomitant]
     Active Substance: GABAPENTIN
     Indication: MULTIPLE SCLEROSIS
     Dosage: 600 MG, QD (STARTED BEFORE IMUSERA)
     Route: 048
  9. GABAPEN [Concomitant]
     Active Substance: GABAPENTIN
     Dosage: 400 MG, BID
     Route: 048
     Dates: start: 20150128
  10. SENNOSIDE [Concomitant]
     Active Substance: SENNOSIDES
     Indication: MULTIPLE SCLEROSIS
     Dosage: 12 MG, QD (STARTED BEFORE IMUSERA)
     Route: 048
     Dates: end: 20120709
  11. DEPAKENE [Concomitant]
     Active Substance: VALPROIC ACID
     Dosage: 400 MG, QD
     Route: 048
     Dates: start: 20141105
  12. MEILAX [Concomitant]
     Active Substance: ETHYL LOFLAZEPATE
     Indication: DEPRESSION
     Dosage: 0.5 MG, QD
     Route: 048
     Dates: start: 20150501
  13. MAGNESIUM OXIDE. [Concomitant]
     Active Substance: MAGNESIUM OXIDE
     Indication: CONSTIPATION
     Dosage: 250 MG, TID
     Route: 048
     Dates: start: 20140205, end: 20160428
  14. MOHRUS [Concomitant]
     Active Substance: KETOPROFEN
     Indication: INTERVERTEBRAL DISC PROTRUSION
     Route: 061
  15. TERRANAS [Concomitant]
     Indication: MIGRAINE
     Dosage: 10 MG, QD (STARTED BEFORE IMUSERA)
     Route: 048
  16. OMEPRAL [Concomitant]
     Active Substance: OMEPRAZOLE
     Indication: PROPHYLAXIS
     Dosage: 20 MG, QD (STARTED BEFORE IMUSERA)
     Route: 048
     Dates: end: 20121001
  17. FAMPRIDINE [Concomitant]
     Active Substance: DALFAMPRIDINE
     Indication: MULTIPLE SCLEROSIS
     Dosage: 10 MG, BID
     Route: 048
     Dates: start: 20131211, end: 20160523
  18. LOXONIN [Concomitant]
     Active Substance: LOXOPROFEN SODIUM
     Indication: MIGRAINE
     Dosage: 120 MG, QD (STARTED BEFORE IMUSERA)
     Route: 048
  19. NEXIUM [Concomitant]
     Active Substance: ESOMEPRAZOLE MAGNESIUM
     Indication: MULTIPLE SCLEROSIS
     Dosage: 20 MG, QD
     Route: 048
     Dates: start: 20121002
  20. TRAVELMIN [Concomitant]
     Active Substance: DIMENHYDRINATE
     Dosage: UNK
     Route: 048
     Dates: start: 20150825
  21. SELBEX [Concomitant]
     Active Substance: TEPRENONE
     Indication: MULTIPLE SCLEROSIS
     Dosage: 150 MG, QD
     Route: 048
     Dates: start: 20121211
  22. TRAVELMIN [Concomitant]
     Active Substance: DIMENHYDRINATE
     Indication: MULTIPLE SCLEROSIS
     Dosage: 3 OT, QD
     Route: 048
     Dates: start: 20130513
  23. TETRAMIDE [Concomitant]
     Active Substance: MIANSERIN
     Indication: DEPRESSION
     Dosage: 10 MG, QD
     Route: 048
     Dates: start: 20141024

REACTIONS (9)
  - Abdominal pain upper [Recovering/Resolving]
  - Abdominal discomfort [Recovering/Resolving]
  - Blood pressure diastolic decreased [Recovered/Resolved]
  - Gamma-glutamyltransferase increased [Not Recovered/Not Resolved]
  - Dysentery [Unknown]
  - White blood cell count decreased [Not Recovered/Not Resolved]
  - Dizziness [Recovering/Resolving]
  - Lymphocyte count decreased [Not Recovered/Not Resolved]
  - Rectal cancer [Not Recovered/Not Resolved]

NARRATIVE: CASE EVENT DATE: 20120419
